FAERS Safety Report 10166906 (Version 1)
Quarter: 2014Q2

REPORT INFORMATION
  Report Type: Spontaneous
  Country: US (occurrence: US)
  Receive Date: 20140512
  Receipt Date: 20140512
  Transmission Date: 20141212
  Serious: Yes (Other)
  Sender: FDA-Public Use
  Company Number: US-PFIZER INC-2014126915

PATIENT
  Age: 53 Year
  Sex: Female
  Weight: 62.59 kg

DRUGS (1)
  1. SUTENT [Suspect]
     Indication: RENAL CELL CARCINOMA
     Dosage: 50 UNK, UNK
     Route: 048

REACTIONS (2)
  - Rash [Unknown]
  - Abdominal pain upper [Unknown]
